FAERS Safety Report 11130448 (Version 3)
Quarter: 2015Q2

REPORT INFORMATION
  Report Type: Spontaneous
  Country: JP (occurrence: JP)
  Receive Date: 20150522
  Receipt Date: 20150612
  Transmission Date: 20150821
  Serious: Yes (Other)
  Sender: FDA-Public Use
  Company Number: JP-009507513-1505JPN010008

PATIENT
  Age: 81 Year
  Sex: Male

DRUGS (5)
  1. MAGMITT [Suspect]
     Active Substance: MAGNESIUM OXIDE
     Dosage: DAILY DOSE UNKNOWN
     Route: 065
  2. MICOMBI [Suspect]
     Active Substance: HYDROCHLOROTHIAZIDE\TELMISARTAN
     Dosage: DAILY DOSE UNKNOWN
     Route: 065
  3. JANUVIA [Suspect]
     Active Substance: SITAGLIPTIN PHOSPHATE
     Dosage: DAILY DOSAGE UNKNOWN
     Route: 048
     Dates: start: 20140901
  4. ADALAT [Suspect]
     Active Substance: NIFEDIPINE
     Dosage: DAILY DOSE UNKNOWN
     Route: 065
  5. FLIVAS [Suspect]
     Active Substance: NAFTOPIDIL
     Dosage: DAILY DOSE UNKNOWN
     Route: 065

REACTIONS (1)
  - Deafness [Unknown]
